FAERS Safety Report 15819825 (Version 1)
Quarter: 2019Q1

REPORT INFORMATION
  Report Type: Report from Study
  Country: ES (occurrence: ES)
  Receive Date: 20190114
  Receipt Date: 20190114
  Transmission Date: 20190417
  Serious: Yes (Hospitalization)
  Sender: FDA-Public Use
  Company Number: ES-CELLTRION INC.-2018ES025218

PATIENT

DRUGS (1)
  1. INFLECTRA [Suspect]
     Active Substance: INFLIXIMAB-DYYB
     Indication: CROHN^S DISEASE
     Dosage: 275 MG, (5 MG/KG) EVERY 6 WEEKS
     Route: 042
     Dates: start: 20160921, end: 20170713

REACTIONS (4)
  - Cardiac failure [Recovered/Resolved]
  - Pneumonia [Recovered/Resolved]
  - Nephrotic syndrome [Recovered/Resolved]
  - Renal amyloidosis [Recovered/Resolved]

NARRATIVE: CASE EVENT DATE: 20171022
